FAERS Safety Report 18672551 (Version 5)
Quarter: 2022Q2

REPORT INFORMATION
  Report Type: Spontaneous
  Country: BR (occurrence: BR)
  Receive Date: 20201228
  Receipt Date: 20220624
  Transmission Date: 20220721
  Serious: Yes (Other)
  Sender: FDA-Public Use
  Company Number: BR-VIIV HEALTHCARE ULC-BR2020AMR250261

PATIENT

DRUGS (5)
  1. TIVICAY [Suspect]
     Active Substance: DOLUTEGRAVIR SODIUM
     Indication: Prophylaxis against HIV infection
     Dosage: 1 DF, 1D, TABLET
     Route: 048
     Dates: start: 20200129
  2. TIVICAY [Suspect]
     Active Substance: DOLUTEGRAVIR SODIUM
     Dosage: UNK
  3. TENOFOVIR DISOPROXIL FUMARATE [Suspect]
     Active Substance: TENOFOVIR DISOPROXIL FUMARATE
     Indication: Product used for unknown indication
     Dosage: 1 DF, 1D TABLET
     Route: 048
     Dates: start: 20200129
  4. LAMIVUDINE [Suspect]
     Active Substance: LAMIVUDINE
     Indication: Product used for unknown indication
     Dosage: 1 DF, 1D 28 TABLETS
     Route: 048
     Dates: start: 20200129
  5. ONDANSETRON HYDROCHLORIDE [Suspect]
     Active Substance: ONDANSETRON HYDROCHLORIDE
     Indication: Nausea
     Dosage: 1 DF, TID, TABLET, 4 MG, EVERY 8H
     Route: 060
     Dates: start: 20200129

REACTIONS (13)
  - Malaise [Unknown]
  - Headache [Unknown]
  - Nausea [Unknown]
  - Vomiting [Unknown]
  - Decreased appetite [Unknown]
  - Swelling face [Unknown]
  - Weight decreased [Unknown]
  - Facial pain [Unknown]
  - Nasal obstruction [Unknown]
  - Acute sinusitis [Unknown]
  - Mental disorder [Unknown]
  - Off label use [Unknown]
  - Product complaint [Unknown]
